FAERS Safety Report 6103572-4 (Version None)
Quarter: 2009Q1

REPORT INFORMATION
  Report Type: 
  Country: None (occurrence: None)
  Receive Date: 20090305
  Receipt Date: 20090223
  Transmission Date: 20090719
  Serious: Yes (Death, Hospitalization)
  Sender: FDA-Public Use
  Company Number: JP-ABBOTT-08P-087-0490469-00

PATIENT
  Sex: Male

DRUGS (8)
  1. HUMIRA [Suspect]
     Indication: RHEUMATOID ARTHRITIS
     Route: 058
     Dates: start: 20081027, end: 20081110
  2. HUMIRA [Suspect]
     Dates: start: 20090106, end: 20090120
  3. ALFACALCIDOL [Concomitant]
     Indication: OSTEOPOROSIS
  4. ALENDRONATE SODIUM [Concomitant]
     Indication: OSTEOPOROSIS
  5. MELOXICAM [Concomitant]
     Indication: ARTHRALGIA
  6. PREDNISOLONE [Concomitant]
     Indication: RHEUMATOID ARTHRITIS
     Dates: end: 20081221
  7. PREDNISOLONE [Concomitant]
     Dates: start: 20090106, end: 20090119
  8. PREDNISOLONE [Concomitant]
     Dates: start: 20090120, end: 20090202

REACTIONS (6)
  - C-REACTIVE PROTEIN INCREASED [None]
  - CHILLS [None]
  - DYSPNOEA [None]
  - INTERSTITIAL LUNG DISEASE [None]
  - PLEURISY [None]
  - PYREXIA [None]
